FAERS Safety Report 15330988 (Version 4)
Quarter: 2018Q4

REPORT INFORMATION
  Report Type: Report from Study
  Country: US (occurrence: US)
  Receive Date: 20180829
  Receipt Date: 20181120
  Transmission Date: 20190204
  Serious: Yes (Hospitalization, Other)
  Sender: FDA-Public Use
  Company Number: PHHY2018US084224

PATIENT
  Age: 61 Year
  Sex: Male

DRUGS (2)
  1. COSENTYX [Suspect]
     Active Substance: SECUKINUMAB
     Indication: ANKYLOSING SPONDYLITIS
     Dosage: 150 MG, QMO
     Route: 058
     Dates: start: 20180410
  2. COSENTYX [Suspect]
     Active Substance: SECUKINUMAB
     Dosage: 150 MG, QMO
     Route: 058

REACTIONS (13)
  - Loss of consciousness [Unknown]
  - Ankylosing spondylitis [Unknown]
  - Inflammation [Unknown]
  - Vein rupture [Unknown]
  - Dizziness [Recovering/Resolving]
  - Fall [Unknown]
  - Bleeding varicose vein [Unknown]
  - Mobility decreased [Unknown]
  - Blood potassium decreased [Unknown]
  - Cellulitis [Recovering/Resolving]
  - Varicose vein [Unknown]
  - Peripheral swelling [Unknown]
  - Blood pressure systolic increased [Unknown]

NARRATIVE: CASE EVENT DATE: 20180707
